FAERS Safety Report 6420101-6 (Version None)
Quarter: 2009Q4

REPORT INFORMATION
  Report Type: 
  Country: None (occurrence: None)
  Receive Date: 20091027
  Receipt Date: 20091013
  Transmission Date: 20100525
  Serious: Yes (Other)
  Sender: FDA-Public Use
  Company Number: 8053416

PATIENT
  Age: 65 Year
  Sex: Female

DRUGS (6)
  1. LEVETIRACETAM [Suspect]
     Dosage: 750 MG 2 D
  2. PAROXETINE [Concomitant]
  3. ENOXAPARIN SODIUM [Concomitant]
  4. DEXAMETHASONE [Concomitant]
  5. MANNITOL [Concomitant]
  6. CEFAZOLIN [Concomitant]

REACTIONS (9)
  - BONE MARROW FAILURE [None]
  - BRONCHOPNEUMONIA [None]
  - CHOLELITHIASIS [None]
  - ENTEROCOCCAL INFECTION [None]
  - LIVER ABSCESS [None]
  - MENINGIOMA [None]
  - PNEUMONIA [None]
  - PSEUDOMONAS INFECTION [None]
  - STAPHYLOCOCCAL INFECTION [None]
